FAERS Safety Report 23840694 (Version 1)
Quarter: 2024Q2

REPORT INFORMATION
  Report Type: Spontaneous
  Country: JP (occurrence: JP)
  Receive Date: 20240510
  Receipt Date: 20240510
  Transmission Date: 20240716
  Serious: Yes (Other)
  Sender: FDA-Public Use
  Company Number: JP-GSKNCCC-Case-01973520_AE-83063

PATIENT

DRUGS (1)
  1. ARNUITY ELLIPTA [Suspect]
     Active Substance: FLUTICASONE FUROATE
     Indication: Asthma
     Dosage: UNK

REACTIONS (5)
  - Pneumonia [Unknown]
  - Oral fungal infection [Unknown]
  - Cough [Unknown]
  - Productive cough [Unknown]
  - Therapy interrupted [Unknown]
